FAERS Safety Report 23355329 (Version 1)
Quarter: 2024Q1

REPORT INFORMATION
  Report Type: Spontaneous
  Country: BY (occurrence: BY)
  Receive Date: 20240102
  Receipt Date: 20240102
  Transmission Date: 20240410
  Serious: Yes (Death, Hospitalization)
  Sender: FDA-Public Use
  Company Number: BY-JNJFOC-20231279823

PATIENT
  Age: 64 Year
  Sex: Male
  Weight: 76 kg

DRUGS (6)
  1. SIRTURO [Suspect]
     Active Substance: BEDAQUILINE FUMARATE
     Indication: Product used for unknown indication
     Route: 048
     Dates: start: 20220623, end: 20221218
  2. PRETOMANID [Suspect]
     Active Substance: PRETOMANID
     Indication: Product used for unknown indication
     Route: 048
     Dates: start: 20220623, end: 20221218
  3. LINEZOLID [Suspect]
     Active Substance: LINEZOLID
     Indication: Product used for unknown indication
     Route: 048
     Dates: start: 20220623, end: 20221218
  4. MOXIFLOXACIN [Suspect]
     Active Substance: MOXIFLOXACIN
     Indication: Product used for unknown indication
     Route: 048
     Dates: start: 20220623, end: 20221218
  5. DACLATASVIR [Concomitant]
     Active Substance: DACLATASVIR
     Indication: Chronic hepatitis C
     Route: 048
  6. SOFOSBUVIR [Concomitant]
     Active Substance: SOFOSBUVIR
     Indication: Chronic hepatitis C
     Route: 048

REACTIONS (1)
  - Cerebral infarction [Fatal]

NARRATIVE: CASE EVENT DATE: 20230604
